FAERS Safety Report 8134322-8 (Version None)
Quarter: 2012Q1

REPORT INFORMATION
  Report Type: 
  Country: None (occurrence: None)
  Receive Date: 20120210
  Receipt Date: 20120203
  Transmission Date: 20120608
  Serious: Yes (Life-Threatening, Hospitalization)
  Sender: FDA-Public Use
  Company Number: 2012-0605

PATIENT
  Age: 4 Year
  Sex: Male
  Weight: 11.9 kg

DRUGS (1)
  1. INCRELEX [Suspect]
     Indication: INSULIN-LIKE GROWTH FACTOR
     Dosage: 14 IU (7 IU, 2 IN 1 D), SUBCUTANEOUS
     Route: 058
     Dates: start: 20100928, end: 20120102

REACTIONS (1)
  - VOLVULUS [None]
